FAERS Safety Report 16730415 (Version 4)
Quarter: 2019Q3

REPORT INFORMATION
  Report Type: Spontaneous
  Country: US (occurrence: US)
  Receive Date: 20190822
  Receipt Date: 20190906
  Transmission Date: 20191005
  Serious: No
  Sender: FDA-Public Use
  Company Number: US-TEVA-2019-US-1094635

PATIENT
  Age: 67 Year
  Sex: Male

DRUGS (5)
  1. DOXYCYCLINE. [Concomitant]
     Active Substance: DOXYCYCLINE
  2. CLONIDINE. [Concomitant]
     Active Substance: CLONIDINE
     Dosage: PATCH
  3. METOPROLOL SUCCINATE ER [Suspect]
     Active Substance: METOPROLOL SUCCINATE
     Indication: HYPERTENSION
     Route: 065
     Dates: start: 201904
  4. DOXYCYCLINE. [Concomitant]
     Active Substance: DOXYCYCLINE
  5. METOPROLOL SUCCINATE ER [Suspect]
     Active Substance: METOPROLOL SUCCINATE
     Dosage: TAKE ONE-HALF IN THE MORNING THEN ONE-HALF IN THE EVENING
     Route: 065

REACTIONS (8)
  - Urticaria [Recovering/Resolving]
  - Dyspnoea [Recovered/Resolved]
  - Acne [Recovering/Resolving]
  - Papule [Not Recovered/Not Resolved]
  - Pigmentation disorder [Recovering/Resolving]
  - Blood pressure increased [Unknown]
  - Scar [Recovering/Resolving]
  - Rash [Recovering/Resolving]
